FAERS Safety Report 9006066 (Version 2)
Quarter: 2013Q1

REPORT INFORMATION
  Report Type: Spontaneous
  Country: US (occurrence: US)
  Receive Date: 20130109
  Receipt Date: 20130117
  Transmission Date: 20140127
  Serious: Yes (Other)
  Sender: FDA-Public Use
  Company Number: PHEH2012US023719

PATIENT
  Age: 21 Year
  Sex: Female
  Weight: 68.27 kg

DRUGS (11)
  1. GILENYA [Suspect]
     Indication: MULTIPLE SCLEROSIS
     Dosage: 0.5 MG, QD
     Route: 048
     Dates: start: 20120314
  2. IMIPRAMINE [Interacting]
  3. BACLOFEN [Concomitant]
  4. BUSPIRONE [Concomitant]
  5. CARISOPRODOL [Concomitant]
  6. LAMOTRIGINE [Concomitant]
  7. OMEPRAZOLE [Concomitant]
  8. RANITIDINE [Concomitant]
  9. APAP [Concomitant]
  10. FLOMAX ^BOEHRINGER INGELHEIM^ [Concomitant]
  11. KEPPRA [Concomitant]

REACTIONS (9)
  - Palpitations [Unknown]
  - Extrasystoles [Not Recovered/Not Resolved]
  - Mood swings [Not Recovered/Not Resolved]
  - Anger [Not Recovered/Not Resolved]
  - Decreased appetite [Not Recovered/Not Resolved]
  - Electrocardiogram QT prolonged [Unknown]
  - Weight decreased [Not Recovered/Not Resolved]
  - Vision blurred [Not Recovered/Not Resolved]
  - Drug interaction [Unknown]
